FAERS Safety Report 7326986-3 (Version None)
Quarter: 2011Q1

REPORT INFORMATION
  Report Type: 
  Country: None (occurrence: None)
  Receive Date: 20110302
  Receipt Date: 20110225
  Transmission Date: 20110831
  Serious: Yes (Congenital Anomaly, Other)
  Sender: FDA-Public Use
  Company Number: US-PFIZER INC-2010092599

PATIENT
  Sex: Female
  Weight: 3 kg

DRUGS (4)
  1. ZOLOFT [Suspect]
     Indication: DEPRESSION
     Dosage: 50 MG, DAILY
     Route: 064
  2. ZOLOFT [Suspect]
     Dosage: 75 MG, DAILY
     Route: 064
  3. PRENATAL VITAMINS [Concomitant]
     Dosage: UNK
     Route: 064
  4. MECLOZINE W/PYRIDOXINE [Concomitant]
     Dosage: UNK, DAILY
     Route: 064

REACTIONS (3)
  - BRADYCARDIA FOETAL [None]
  - VACTERL SYNDROME [None]
  - DRUG EXPOSURE DURING PREGNANCY [None]
